FAERS Safety Report 15648862 (Version 1)
Quarter: 2018Q4

REPORT INFORMATION
  Report Type: Spontaneous
  Country: BE (occurrence: BE)
  Receive Date: 20181122
  Receipt Date: 20181122
  Transmission Date: 20190205
  Serious: Yes (Hospitalization, Other)
  Sender: FDA-Public Use
  Company Number: BE-ASTRAZENECA-2018SF51277

PATIENT
  Age: 13871 Day
  Sex: Female
  Weight: 63 kg

DRUGS (13)
  1. SYMBICORT [Concomitant]
     Active Substance: BUDESONIDE\FORMOTEROL FUMARATE DIHYDRATE
     Dosage: 3X2 INHALATIONS PER DAY
     Route: 055
  2. AERIUS (DESLORATADINE) [Concomitant]
     Active Substance: DESLORATADINE
  3. FLUCONAZOLE. [Concomitant]
     Active Substance: FLUCONAZOLE
  4. QVAR [Concomitant]
     Active Substance: BECLOMETHASONE DIPROPIONATE
     Dosage: 4X2 INHALATIONS PER DAY
  5. ATROVENT [Concomitant]
     Active Substance: IPRATROPIUM BROMIDE
     Dosage: 4X2 INHALATIONS PER DAY
  6. AZITHROMYCIN ANHYDROUS. [Concomitant]
     Active Substance: AZITHROMYCIN ANHYDROUS
  7. FASENRA [Suspect]
     Active Substance: BENRALIZUMAB
     Route: 058
  8. AVAMYS [Concomitant]
     Active Substance: FLUTICASONE FUROATE
     Route: 045
  9. CACIT [Concomitant]
     Active Substance: CALCIUM\VITAMIN D
  10. OMNIBIONTA [Concomitant]
     Active Substance: VITAMINS
  11. MEDROL [Concomitant]
     Active Substance: METHYLPREDNISOLONE
  12. PANTOMED (PANTOPRAZOLE SODIUM SESQUIHYDRATE) [Concomitant]
     Active Substance: PANTOPRAZOLE SODIUM
  13. PARACODINE [Concomitant]
     Active Substance: DIHYDROCODEINE BITARTRATE
     Indication: COUGH
     Dosage: AS REQUIRED

REACTIONS (4)
  - Asthma [Unknown]
  - Dysphonia [Unknown]
  - Dyspnoea [Unknown]
  - Productive cough [Unknown]

NARRATIVE: CASE EVENT DATE: 20181022
